FAERS Safety Report 25742226 (Version 1)
Quarter: 2025Q3

REPORT INFORMATION
  Report Type: Spontaneous
  Country: EU (occurrence: EU)
  Receive Date: 20250829
  Receipt Date: 20250829
  Transmission Date: 20251021
  Serious: Yes (Life-Threatening, Hospitalization)
  Sender: MYLAN
  Company Number: None

PATIENT
  Age: 59 Year
  Sex: Male
  Weight: 110 kg

DRUGS (2)
  1. GABAPENTIN [Suspect]
     Active Substance: GABAPENTIN
     Indication: Product used for unknown indication
  2. ESCITALOPRAM [Suspect]
     Active Substance: ESCITALOPRAM OXALATE
     Indication: Product used for unknown indication

REACTIONS (1)
  - Pancreatitis necrotising [Not Recovered/Not Resolved]

NARRATIVE: CASE EVENT DATE: 20250803
